FAERS Safety Report 14163432 (Version 1)
Quarter: 2017Q4

REPORT INFORMATION
  Report Type: Spontaneous
  Country: KR (occurrence: KR)
  Receive Date: 20171106
  Receipt Date: 20171106
  Transmission Date: 20180321
  Serious: Yes (Other)
  Sender: FDA-Public Use
  Company Number: PHHY2017KR159667

PATIENT
  Age: 52 Year
  Sex: Male

DRUGS (2)
  1. TACROLIMUS. [Suspect]
     Active Substance: TACROLIMUS
     Indication: HEART TRANSPLANT
     Dosage: UNK
     Route: 065
  2. TACROLIMUS. [Suspect]
     Active Substance: TACROLIMUS
     Indication: IMMUNOSUPPRESSANT DRUG THERAPY

REACTIONS (8)
  - Cerebral artery stenosis [Unknown]
  - Posterior reversible encephalopathy syndrome [Recovered/Resolved]
  - Reversible cerebral vasoconstriction syndrome [Recovering/Resolving]
  - Muscular weakness [Unknown]
  - Cerebral infarction [Unknown]
  - Generalised tonic-clonic seizure [Unknown]
  - Mental status changes [Unknown]
  - Visual acuity reduced [Unknown]
